FAERS Safety Report 7941920-0 (Version None)
Quarter: 2011Q4

REPORT INFORMATION
  Report Type: 
  Country: None (occurrence: None)
  Receive Date: 20111128
  Receipt Date: 20111121
  Transmission Date: 20120403
  Serious: Yes (Hospitalization, Other)
  Sender: FDA-Public Use
  Company Number: US-VERTEX PHARMACEUTICALS INC.-AE-2011-003871

PATIENT
  Sex: Male
  Weight: 46.308 kg

DRUGS (7)
  1. INCIVEK [Suspect]
     Indication: HEPATITIS C
     Route: 048
     Dates: start: 20111010
  2. ATENOLOL [Concomitant]
     Route: 048
  3. CLARITIN [Concomitant]
     Route: 048
  4. ZOFRAN [Concomitant]
     Route: 048
  5. BENADRYL [Concomitant]
     Route: 048
  6. INTERFERON [Concomitant]
     Indication: HEPATITIS C
     Route: 058
     Dates: start: 20111010
  7. RIBAVIRIN [Concomitant]
     Indication: HEPATITIS C
     Route: 048
     Dates: start: 20111010

REACTIONS (9)
  - URTICARIA [None]
  - CHILLS [None]
  - HAEMOGLOBIN DECREASED [None]
  - PYREXIA [None]
  - LIP SWELLING [None]
  - DYSPNOEA [None]
  - FEELING HOT [None]
  - OEDEMA PERIPHERAL [None]
  - LETHARGY [None]
